FAERS Safety Report 24905602 (Version 1)
Quarter: 2025Q1

REPORT INFORMATION
  Report Type: Report from Study
  Country: US (occurrence: US)
  Receive Date: 20250130
  Receipt Date: 20250130
  Transmission Date: 20250409
  Serious: No
  Sender: HRA PHARMA
  Company Number: US-ORG100014127-2024000091

PATIENT
  Age: 47 Year
  Sex: Female

DRUGS (3)
  1. METOPIRONE [Suspect]
     Active Substance: METYRAPONE
     Indication: Pituitary-dependent Cushing^s syndrome
     Dosage: 4 CAPSULES BY MOUTH THREE TIMES DAILY (TOTAL DOSE 1000MG THREE TIMES DAILY)
     Dates: start: 20240330
  2. METOPIRONE [Suspect]
     Active Substance: METYRAPONE
     Indication: Pituitary-dependent Cushing^s syndrome
     Dosage: 6 CAPSULES BY MOUTH THREE TIMES DAILY
  3. LEVOTHYROXIN TAB 75MCG [Concomitant]
     Indication: Product used for unknown indication

REACTIONS (1)
  - Off label use [Unknown]

NARRATIVE: CASE EVENT DATE: 20240513
